FAERS Safety Report 15396560 (Version 1)
Quarter: 2018Q3

REPORT INFORMATION
  Report Type: Other
  Country: US (occurrence: US)
  Receive Date: 20180918
  Receipt Date: 20180918
  Transmission Date: 20181010
  Serious: No
  Sender: FDA-Public Use
  Company Number: US-LEADIANT BIOSCIENCES INC-2018STPI000147

PATIENT
  Sex: Female

DRUGS (7)
  1. KEPPRA [Concomitant]
     Active Substance: LEVETIRACETAM
  2. LORATADINE. [Concomitant]
     Active Substance: LORATADINE
  3. ONDANSETRON [Concomitant]
     Active Substance: ONDANSETRON
  4. LOMUSTINE. [Concomitant]
     Active Substance: LOMUSTINE
  5. MATULANE [Suspect]
     Active Substance: PROCARBAZINE HYDROCHLORIDE
     Indication: BRAIN NEOPLASM MALIGNANT
     Dosage: 100 MG, DAILY FOR 14 DAYS
     Route: 048
     Dates: start: 20170829
  6. MEMANTINE. [Concomitant]
     Active Substance: MEMANTINE
  7. VIMPAT [Concomitant]
     Active Substance: LACOSAMIDE

REACTIONS (4)
  - White blood cell count decreased [Not Recovered/Not Resolved]
  - Platelet count decreased [Not Recovered/Not Resolved]
  - Constipation [Not Recovered/Not Resolved]
  - Fatigue [Not Recovered/Not Resolved]
